FAERS Safety Report 25600482 (Version 2)
Quarter: 2025Q3

REPORT INFORMATION
  Report Type: Spontaneous
  Country: EU (occurrence: EU)
  Receive Date: 20250724
  Receipt Date: 20250728
  Transmission Date: 20251021
  Serious: Yes (Life-Threatening)
  Sender: EXELIXIS
  Company Number: EU-IPSEN Group, Research and Development-2025-17875

PATIENT
  Age: 71 Year
  Sex: Male

DRUGS (2)
  1. CABOMETYX [Suspect]
     Active Substance: CABOZANTINIB S-MALATE
     Indication: Renal cancer
     Route: 048
     Dates: start: 20240725, end: 20250127
  2. CELLCEPT [Suspect]
     Active Substance: MYCOPHENOLATE MOFETIL
     Indication: Renal cancer
     Route: 048
     Dates: start: 20240725, end: 20250127

REACTIONS (2)
  - Upper airway necrosis [Not Recovered/Not Resolved]
  - Mediastinitis [Not Recovered/Not Resolved]

NARRATIVE: CASE EVENT DATE: 20250126
